FAERS Safety Report 13309550 (Version 3)
Quarter: 2017Q1

REPORT INFORMATION
  Report Type: Spontaneous
  Country: DK (occurrence: DK)
  Receive Date: 20170309
  Receipt Date: 20170315
  Transmission Date: 20170428
  Serious: Yes (Hospitalization)
  Sender: FDA-Public Use
  Company Number: DK-PFIZER INC-2015091089

PATIENT
  Age: 72 Year
  Sex: Male

DRUGS (3)
  1. DONEPEZIL HCL [Interacting]
     Active Substance: DONEPEZIL HYDROCHLORIDE
     Indication: DEMENTIA
     Dosage: UNK
     Route: 048
  2. PROPOFOL. [Suspect]
     Active Substance: PROPOFOL
     Indication: ANAESTHESIA
     Dosage: UNK, AT REDUCED DOSE
     Route: 042
  3. REMIFENTANIL [Interacting]
     Active Substance: REMIFENTANIL
     Indication: ANAESTHESIA
     Dosage: UNK, AT REDUCED DOSE
     Route: 042

REACTIONS (2)
  - Sinus bradycardia [Recovered/Resolved]
  - Drug interaction [Unknown]
